FAERS Safety Report 7148373-3 (Version None)
Quarter: 2010Q4

REPORT INFORMATION
  Report Type: 
  Country: None (occurrence: None)
  Receive Date: 20101209
  Receipt Date: 20101202
  Transmission Date: 20110411
  Serious: Yes (Other)
  Sender: FDA-Public Use
  Company Number: JP-PFIZER INC-2010163157

PATIENT
  Age: 81 Year
  Sex: Female

DRUGS (3)
  1. LYRICA [Suspect]
     Indication: PAIN IN EXTREMITY
     Dosage: 50 MG DAILY
     Route: 048
     Dates: start: 20101022, end: 20101024
  2. LYRICA [Suspect]
     Dosage: 100 MG DAILY
     Route: 048
     Dates: start: 20101025, end: 20101103
  3. LYRICA [Suspect]
     Dosage: 50 MG DAILY
     Route: 048
     Dates: start: 20101104, end: 20101112

REACTIONS (2)
  - CONSTIPATION [None]
  - MENTAL DISORDER [None]
